FAERS Safety Report 7070351-3 (Version None)
Quarter: 2010Q4

REPORT INFORMATION
  Report Type: 
  Country: None (occurrence: None)
  Receive Date: 20101028
  Receipt Date: 20101021
  Transmission Date: 20110411
  Serious: Yes (Other)
  Sender: FDA-Public Use
  Company Number: US-WYE-H18275010

PATIENT
  Age: 58 Year
  Sex: Male
  Weight: 72.6 kg

DRUGS (7)
  1. EFFEXOR [Suspect]
     Indication: DEPRESSION
     Dosage: UNKNOWN
     Dates: start: 20070101
  2. SEROQUEL [Suspect]
     Indication: DEPRESSION
     Dosage: UNKNOWN
     Dates: start: 20070101
  3. LUNESTA [Suspect]
     Indication: INSOMNIA
     Dates: start: 20061201
  4. LUNESTA [Suspect]
  5. LUNESTA [Suspect]
  6. LUNESTA [Suspect]
  7. LUNESTA [Suspect]
     Route: 048
     Dates: end: 20090401

REACTIONS (3)
  - DRUG INEFFECTIVE [None]
  - SUICIDAL IDEATION [None]
  - SUICIDE ATTEMPT [None]
